FAERS Safety Report 6398936-8 (Version None)
Quarter: 2009Q4

REPORT INFORMATION
  Report Type: 
  Country: None (occurrence: None)
  Receive Date: 20091013
  Receipt Date: 20090930
  Transmission Date: 20100525
  Serious: Yes (Hospitalization)
  Sender: FDA-Public Use
  Company Number: CA-ELI_LILLY_AND_COMPANY-CA200909006436

PATIENT
  Sex: Male

DRUGS (3)
  1. CIALIS [Suspect]
     Dosage: 20 MG, UNKNOWN
     Route: 065
  2. CIALIS [Suspect]
     Dosage: 10 MG, UNKNOWN
     Route: 065
     Dates: start: 20090901
  3. PINDOLOL [Concomitant]
     Dosage: 5 MG, DAILY (1/D)
     Route: 065

REACTIONS (6)
  - DYSPEPSIA [None]
  - LOSS OF CONSCIOUSNESS [None]
  - NAUSEA [None]
  - PAIN IN EXTREMITY [None]
  - SYNCOPE [None]
  - VOMITING [None]
